FAERS Safety Report 25771569 (Version 1)
Quarter: 2025Q3

REPORT INFORMATION
  Report Type: Spontaneous
  Country: US (occurrence: US)
  Receive Date: 20250908
  Receipt Date: 20250908
  Transmission Date: 20251021
  Serious: No
  Sender: DOMPE FARMACEUTICI
  Company Number: US-FARMAPROD-202504-1421

PATIENT
  Sex: Female
  Weight: 61.69 kg

DRUGS (24)
  1. OXERVATE [Suspect]
     Active Substance: CENEGERMIN-BKBJ
     Indication: Neurotrophic keratopathy
     Route: 047
     Dates: start: 20230215
  2. OXERVATE [Suspect]
     Active Substance: CENEGERMIN-BKBJ
     Route: 047
     Dates: start: 20250418, end: 20250523
  3. OXERVATE [Suspect]
     Active Substance: CENEGERMIN-BKBJ
  4. OXERVATE [Suspect]
     Active Substance: CENEGERMIN-BKBJ
  5. OXERVATE [Suspect]
     Active Substance: CENEGERMIN-BKBJ
  6. HUMULIN N [Concomitant]
     Active Substance: INSULIN HUMAN
  7. AZELASTINE HYDROCHLORIDE [Concomitant]
     Active Substance: AZELASTINE HYDROCHLORIDE
  8. COSOPT PF [Concomitant]
     Active Substance: DORZOLAMIDE HYDROCHLORIDE\TIMOLOL MALEATE
  9. VITAMIN D3 [Concomitant]
     Active Substance: CHOLECALCIFEROL
  10. CLARITIN-D 12 HOUR [Concomitant]
     Active Substance: LORATADINE\PSEUDOEPHEDRINE SULFATE
  11. HUMULIN R [Concomitant]
     Active Substance: INSULIN HUMAN
  12. ROCKLATAN [Concomitant]
     Active Substance: LATANOPROST\NETARSUDIL MESYLATE
  13. BRIMONIDINE TARTRATE [Concomitant]
     Active Substance: BRIMONIDINE TARTRATE
  14. REFRESH TEARS [Concomitant]
     Active Substance: CARBOXYMETHYLCELLULOSE SODIUM
  15. BENAZEPRIL HYDROCHLORIDE [Concomitant]
     Active Substance: BENAZEPRIL HYDROCHLORIDE
  16. SODIUM CHLORIDE [Concomitant]
     Active Substance: SODIUM CHLORIDE
  17. HUMIRA [Concomitant]
     Active Substance: ADALIMUMAB
  18. OFLOXACIN [Concomitant]
     Active Substance: OFLOXACIN
  19. ALPHAGAN P [Concomitant]
     Active Substance: BRIMONIDINE TARTRATE
  20. DORZOLAMIDE AND TIMOLOL [Concomitant]
     Active Substance: DORZOLAMIDE HYDROCHLORIDE\TIMOLOL MALEATE
     Dosage: 2%-5%
  21. VALTREX [Concomitant]
     Active Substance: VALACYCLOVIR HYDROCHLORIDE
     Route: 048
  22. TOBRAMYCIN [Concomitant]
     Active Substance: TOBRAMYCIN
     Dates: start: 20250523
  23. FORTIFIED VANCOMYCIN [Concomitant]
     Dates: start: 20250523
  24. AMPHOTERICIN B [Concomitant]
     Active Substance: AMPHOTERICIN B
     Dates: start: 20250523

REACTIONS (10)
  - Eye pain [Not Recovered/Not Resolved]
  - Rash [Unknown]
  - Accidental overdose [Unknown]
  - Photophobia [Unknown]
  - Inflammation [Unknown]
  - Eye swelling [Unknown]
  - Vision blurred [Unknown]
  - Eye discharge [Unknown]
  - Eye ulcer [Unknown]
  - Pain [Unknown]
